APPROVED DRUG PRODUCT: COMPAZINE
Active Ingredient: PROCHLORPERAZINE MALEATE
Strength: EQ 30MG BASE
Dosage Form/Route: CAPSULE, EXTENDED RELEASE;ORAL
Application: N011000 | Product #003
Applicant: GLAXOSMITHKLINE
Approved: Approved Prior to Jan 1, 1982 | RLD: No | RS: No | Type: DISCN